FAERS Safety Report 11258044 (Version 1)
Quarter: 2015Q3

REPORT INFORMATION
  Report Type: Spontaneous
  Country: US (occurrence: None)
  Receive Date: 20150708
  Receipt Date: 20150708
  Transmission Date: 20151125
  Serious: Yes (Other)
  Sender: FDA-Public Use
  Company Number: VIT-2015-00644

PATIENT
  Age: 69 Year
  Sex: Female
  Weight: 65 kg

DRUGS (1)
  1. VELPHORO [Suspect]
     Active Substance: FERRIC OXYHYDROXIDE
     Indication: HYPERPHOSPHATAEMIA
     Dosage: BEFORE EACH MEAL
     Dates: start: 201211, end: 201501

REACTIONS (2)
  - Inappropriate schedule of drug administration [None]
  - Transferrin saturation increased [None]

NARRATIVE: CASE EVENT DATE: 201411
